FAERS Safety Report 5618793-4 (Version None)
Quarter: 2008Q1

REPORT INFORMATION
  Report Type: 
  Country: None (occurrence: None)
  Receive Date: 20080207
  Receipt Date: 20080131
  Transmission Date: 20080703
  Serious: Yes (Hospitalization)
  Sender: FDA-Public Use
  Company Number: DE-BRISTOL-MYERS SQUIBB COMPANY-14068134

PATIENT
  Age: 55 Year
  Sex: Female

DRUGS (4)
  1. CETUXIMAB [Suspect]
     Indication: COLORECTAL CANCER
     Dosage: MOST RECENT ADMINISTRATION ON 11JAN08. RECEIVED 432.7 MG ON 18JAN08 AND 25JAN08
     Route: 042
     Dates: start: 20080111
  2. OXALIPLATIN [Suspect]
     Indication: COLORECTAL CANCER
     Dosage: MOST RECENT INFUSION ON 30AUG07
     Route: 042
     Dates: start: 20070830
  3. BEVACIZUMAB [Suspect]
     Indication: COLORECTAL CANCER
     Dosage: MOST RECENT INFUSION ON 28DEC07
     Route: 042
     Dates: start: 20071228
  4. CAPECITABINE [Suspect]
     Indication: COLORECTAL CANCER
     Dosage: FORM = TAB. MOST RECENT ADMINISTRATION ON 11JAN08. RECEIVED 502.5 MG ON 18JAN08
     Route: 048
     Dates: start: 20080111

REACTIONS (1)
  - MUSCLE SPASMS [None]
